FAERS Safety Report 19800209 (Version 1)
Quarter: 2021Q3

REPORT INFORMATION
  Report Type: Spontaneous
  Country: US (occurrence: US)
  Receive Date: 20210908
  Receipt Date: 20210908
  Transmission Date: 20211014
  Serious: No
  Sender: FDA-Public Use
  Company Number: US-GLENMARK PHARMACEUTICALS-2021GMK052338

PATIENT

DRUGS (2)
  1. ACYCLOVIR OINTMENT USP [Suspect]
     Active Substance: ACYCLOVIR
     Indication: PRODUCT USED FOR UNKNOWN INDICATION
     Dosage: UNK (OLD TUBE)
     Route: 065
  2. ACYCLOVIR OINTMENT USP [Suspect]
     Active Substance: ACYCLOVIR
     Dosage: UNK (NEW TUBE)
     Route: 065

REACTIONS (1)
  - Expired product administered [Unknown]
